FAERS Safety Report 14918325 (Version 1)
Quarter: 2018Q2

REPORT INFORMATION
  Report Type: Spontaneous
  Country: US (occurrence: US)
  Receive Date: 20180502
  Receipt Date: 20180502
  Transmission Date: 20180711
  Serious: Yes (Other)
  Sender: FDA-Public Use
  Company Number: None

PATIENT
  Age: 27 Year
  Sex: Female
  Weight: 86.18 kg

DRUGS (1)
  1. MIRENA [Suspect]
     Active Substance: LEVONORGESTREL
     Dates: start: 20120509, end: 20120517

REACTIONS (5)
  - Vaginal haemorrhage [None]
  - Pain [None]
  - Migraine [None]
  - Muscle spasms [None]
  - Sexual dysfunction [None]

NARRATIVE: CASE EVENT DATE: 20130410
